FAERS Safety Report 7129775-8 (Version None)
Quarter: 2010Q4

REPORT INFORMATION
  Report Type: 
  Country: None (occurrence: None)
  Receive Date: 20101130
  Receipt Date: 20101126
  Transmission Date: 20110411
  Serious: Yes (Hospitalization)
  Sender: FDA-Public Use
  Company Number: ES-MERCK-1011ESP00010

PATIENT
  Sex: Female

DRUGS (3)
  1. FOSAMAX PLUS D [Suspect]
     Indication: OSTEOPOROSIS
     Route: 048
     Dates: start: 20100901, end: 20101101
  2. ALENDRONATE SODIUM [Suspect]
     Indication: OSTEOPOROSIS
     Route: 048
     Dates: start: 20020101, end: 20100901
  3. ALENDRONATE SODIUM [Suspect]
     Route: 048
     Dates: start: 19970101, end: 20020101

REACTIONS (3)
  - DEVICE RELATED INFECTION [None]
  - FEMUR FRACTURE [None]
  - STRESS FRACTURE [None]
